FAERS Safety Report 13428129 (Version 1)
Quarter: 2017Q2

REPORT INFORMATION
  Report Type: Spontaneous
  Country: US (occurrence: US)
  Receive Date: 20170411
  Receipt Date: 20170411
  Transmission Date: 20170830
  Serious: No
  Sender: FDA-Public Use
  Company Number: US-009507513-1704USA003891

PATIENT
  Sex: Female

DRUGS (5)
  1. LORATADINE. [Concomitant]
     Active Substance: LORATADINE
  2. CLONAZEPAM. [Concomitant]
     Active Substance: CLONAZEPAM
  3. DICLOFENAC [Concomitant]
     Active Substance: DICLOFENAC
  4. ZEPATIER [Suspect]
     Active Substance: ELBASVIR\GRAZOPREVIR
     Indication: CHRONIC HEPATITIS C
     Route: 048
  5. CITALOPRAM HYDROBROMIDE. [Concomitant]
     Active Substance: CITALOPRAM HYDROBROMIDE

REACTIONS (4)
  - Fatigue [Unknown]
  - Somnolence [Unknown]
  - Headache [Unknown]
  - Malaise [Unknown]
